FAERS Safety Report 8214291-2 (Version None)
Quarter: 2012Q1

REPORT INFORMATION
  Report Type: 
  Country: None (occurrence: None)
  Receive Date: 20120316
  Receipt Date: 20120306
  Transmission Date: 20120608
  Serious: Yes (Hospitalization)
  Sender: FDA-Public Use
  Company Number: US-SANOFI-AVENTIS-2012SA015369

PATIENT
  Sex: Female

DRUGS (2)
  1. METFORMIN HCL [Suspect]
     Route: 065
  2. DIABETA [Suspect]
     Route: 065

REACTIONS (1)
  - CEREBROVASCULAR ACCIDENT [None]
